FAERS Safety Report 9254924 (Version 3)
Quarter: 2014Q1

REPORT INFORMATION
  Report Type: Spontaneous
  Country: US (occurrence: None)
  Receive Date: 20130418
  Receipt Date: 20140318
  Transmission Date: 20141002
  Serious: Yes (Hospitalization)
  Sender: FDA-Public Use
  Company Number: AUR-APL-2013-03143

PATIENT
  Age: 66 Year
  Sex: Male

DRUGS (7)
  1. VALACYCLOVIR [Suspect]
     Indication: OPHTHALMIC HERPES ZOSTER
     Dosage: (1000 MG,1 D)
     Route: 048
  2. TRIFLURIDINE (TRIFLURIDINE) [Concomitant]
  3. SIMVASTATIN (SIMVASTATIN) [Concomitant]
  4. METOPROLOL (METOPROLOL) [Concomitant]
  5. SEVELAMER (SEVELAMER) [Concomitant]
  6. FUROSEMIDE (FUROSEMIDE) [Concomitant]
  7. GLIMEPIRIDE (GLIMEPIRIDE) [Concomitant]

REACTIONS (6)
  - Neurotoxicity [None]
  - Hallucination [None]
  - Insomnia [None]
  - Photosensitivity reaction [None]
  - Insomnia [None]
  - Photophobia [None]
